FAERS Safety Report 21131554 (Version 1)
Quarter: 2022Q3

REPORT INFORMATION
  Report Type: Spontaneous
  Country: None (occurrence: FR)
  Receive Date: 20220726
  Receipt Date: 20220726
  Transmission Date: 20221026
  Serious: Yes (Other)
  Sender: FDA-Public Use
  Company Number: FR-B.Braun Medical Inc.-2131244

PATIENT
  Age: 40 Year
  Sex: Female

DRUGS (3)
  1. ACETAMINOPHEN [Suspect]
     Active Substance: ACETAMINOPHEN
  2. ALPRAZOLAM [Suspect]
     Active Substance: ALPRAZOLAM
  3. TRAMADOL [Suspect]
     Active Substance: TRAMADOL

REACTIONS (1)
  - Victim of chemical submission [Unknown]
